FAERS Safety Report 6959006-0 (Version None)
Quarter: 2010Q3

REPORT INFORMATION
  Report Type: 
  Country: None (occurrence: None)
  Receive Date: 20100831
  Receipt Date: 20100824
  Transmission Date: 20110219
  Serious: No
  Sender: FDA-Public Use
  Company Number: GR-ELI_LILLY_AND_COMPANY-GR201007002921

PATIENT

DRUGS (3)
  1. GEMZAR [Suspect]
     Indication: PLEURAL MESOTHELIOMA MALIGNANT
     Dosage: 1000 MG/M2, UNKNOWN
     Route: 042
  2. DEXAMETHASONE [Concomitant]
     Dosage: UNK, UNKNOWN
     Route: 065
  3. DOCETAXEL [Concomitant]
     Dosage: 80 MG/M2, UNKNOWN
     Route: 042

REACTIONS (1)
  - NO ADVERSE EVENT [None]
